FAERS Safety Report 10453036 (Version 3)
Quarter: 2014Q4

REPORT INFORMATION
  Report Type: Spontaneous
  Country: US (occurrence: US)
  Receive Date: 20140915
  Receipt Date: 20141014
  Transmission Date: 20150528
  Serious: Yes (Hospitalization)
  Sender: FDA-Public Use
  Company Number: US-RECKITT BENCKISER PHARMACEUTICAL, INC-RB-2918-2006

PATIENT
  Age: 54 Year
  Sex: Female
  Weight: 75.74 kg

DRUGS (13)
  1. SUBOXONE [Suspect]
     Active Substance: BUPRENORPHINE HYDROCHLORIDE\NALOXONE HYDROCHLORIDE
     Dosage: PATIENT REPORTS TAKING 8 MG AM AND 4 MG QHS.
     Route: 060
     Dates: start: 20060222
  2. KLONOPIN [Concomitant]
     Active Substance: CLONAZEPAM
     Indication: PANIC DISORDER
     Dosage: 0.5 MG, BID
     Route: 048
  3. PREMARIN [Concomitant]
     Active Substance: ESTROGENS, CONJUGATED
     Indication: MENOPAUSE
     Dosage: PATIENT REPORTS ONE TABLET PER DAY.
     Route: 048
     Dates: start: 20051109
  4. SUBOXONE [Suspect]
     Active Substance: BUPRENORPHINE HYDROCHLORIDE\NALOXONE HYDROCHLORIDE
     Indication: DRUG DEPENDENCE
     Dosage: CUMULATIVE DOSE:  1408  MG, 4 MG BID
     Route: 060
     Dates: start: 20050830, end: 20060221
  5. SUBOXONE [Suspect]
     Active Substance: BUPRENORPHINE HYDROCHLORIDE\NALOXONE HYDROCHLORIDE
     Dosage: 4 MG DAILY
     Route: 060
  6. LEVSIN [Suspect]
     Active Substance: HYOSCYAMINE SULFATE
     Indication: HYPERHIDROSIS
     Dosage: 0.125 MG DAILY
     Route: 048
     Dates: start: 20051010, end: 20051011
  7. TETRACYCLINE [Suspect]
     Active Substance: TETRACYCLINE
     Indication: BACTERIAL INFECTION
     Dosage: 500 MG, BID
     Route: 048
     Dates: start: 20051010, end: 20051011
  8. CYMBALTA [Concomitant]
     Active Substance: DULOXETINE HYDROCHLORIDE
     Indication: DEPRESSION
     Dosage: 60 MG DAILY
     Route: 048
     Dates: start: 20051013
  9. SYNTHROID [Concomitant]
     Active Substance: LEVOTHYROXINE SODIUM
     Indication: HYPERTHYROIDISM
     Dosage: 75 ?G DAILY
     Route: 048
     Dates: start: 20050512
  10. ALBUTEROL. [Concomitant]
     Active Substance: ALBUTEROL
     Indication: ASTHMA
     Dosage: AS NECESSARY
     Dates: start: 20051109
  11. PROGESTERONE. [Concomitant]
     Active Substance: PROGESTERONE
     Indication: HYPERPLASIA
     Dosage: PATIENT REPORTS ONE TABLET PER DAY.
     Route: 048
     Dates: start: 20051109
  12. ZOLOFT [Concomitant]
     Active Substance: SERTRALINE HYDROCHLORIDE
     Indication: PANIC DISORDER
     Dosage: 200 MG DAILY
     Route: 048
  13. NORTRIPTYLINE [Concomitant]
     Active Substance: NORTRIPTYLINE
     Indication: DEPRESSION
     Dosage: 50 MG DAILY
     Route: 048
     Dates: start: 20050512

REACTIONS (5)
  - Tachycardia [Recovered/Resolved]
  - Drug withdrawal syndrome [Recovered/Resolved]
  - Hyperhidrosis [Recovered/Resolved]
  - Anxiety [Recovered/Resolved]
  - Hyperventilation [Recovered/Resolved]

NARRATIVE: CASE EVENT DATE: 20051011
